FAERS Safety Report 9059673 (Version 1)
Quarter: 2013Q1

REPORT INFORMATION
  Report Type: Spontaneous
  Country: NL (occurrence: NL)
  Receive Date: 20130212
  Receipt Date: 20130212
  Transmission Date: 20140127
  Serious: Yes (Other)
  Sender: FDA-Public Use
  Company Number: NL-AMGEN-NLDSP2013008429

PATIENT
  Age: 74 Year
  Sex: Female

DRUGS (2)
  1. ENBREL [Suspect]
     Indication: PSORIASIS
     Dosage: 50 MG, WEEKLY
     Dates: start: 200910
  2. ENBREL [Suspect]
     Dosage: 50 MG, WEEKLY

REACTIONS (2)
  - Jaw disorder [Recovered/Resolved]
  - Wound infection [Recovered/Resolved]
